FAERS Safety Report 4480629-5 (Version None)
Quarter: 2004Q4

REPORT INFORMATION
  Report Type: 
  Country: None (occurrence: None)
  Receive Date: 20041019
  Receipt Date: 20040929
  Transmission Date: 20050328
  Serious: Yes (Death)
  Sender: FDA-Public Use
  Company Number: 2004072650

PATIENT
  Age: 80 Year
  Sex: Female

DRUGS (4)
  1. ZOLOFT [Suspect]
     Indication: DEPRESSION
     Dosage: 50 MG (50 MG,1 IN 1 D),
     Dates: end: 20040301
  2. REBOXETINE (REBOXETINE) [Suspect]
     Indication: DEPRESSION
     Dosage: 8 MG (4 MG,2 IN 1 D), ORAL
     Route: 048
     Dates: end: 20040301
  3. QUETIAPINE FUMARATE (QUETIAPINE FUMARATE) [Concomitant]
  4. ALL OTHER THERAPEUTIC PRODUCTS (ALL OTHER THERAPEUTIC PRODUCTS) [Concomitant]

REACTIONS (4)
  - EATING DISORDER [None]
  - MYOCARDIAL INFARCTION [None]
  - PSYCHOMOTOR RETARDATION [None]
  - UNDERWEIGHT [None]
